FAERS Safety Report 20115819 (Version 2)
Quarter: 2021Q4

REPORT INFORMATION
  Report Type: Spontaneous
  Country: SE (occurrence: SE)
  Receive Date: 20211126
  Receipt Date: 20211202
  Transmission Date: 20220303
  Serious: Yes (Hospitalization, Other)
  Sender: FDA-Public Use
  Company Number: SE-ABBVIE-21K-150-4176745-00

PATIENT
  Sex: Male
  Weight: 94 kg

DRUGS (5)
  1. VENETOCLAX [Suspect]
     Active Substance: VENETOCLAX
     Indication: Acute myeloid leukaemia
     Route: 048
     Dates: start: 20190401
  2. VENETOCLAX [Suspect]
     Active Substance: VENETOCLAX
     Dosage: DOSAGE DECREASED
     Route: 048
  3. VIDAZA [Suspect]
     Active Substance: AZACITIDINE
     Indication: Product used for unknown indication
     Route: 065
     Dates: start: 20190401
  4. ORUDIS [Concomitant]
     Active Substance: KETOPROFEN
     Indication: Product used for unknown indication
  5. NOXAFIL [Concomitant]
     Active Substance: POSACONAZOLE
     Indication: Product used for unknown indication

REACTIONS (15)
  - Stem cell transplant [Recovered/Resolved]
  - Myocarditis [Recovered/Resolved]
  - Febrile neutropenia [Recovered/Resolved]
  - Cardiac failure [Recovered/Resolved]
  - Renal failure [Recovered/Resolved]
  - Drug dependence [Unknown]
  - Off label use [Unknown]
  - Intentional product misuse [Unknown]
  - Stress [Recovered/Resolved]
  - Oral pain [Unknown]
  - Diabetes mellitus [Recovered/Resolved]
  - Secretion discharge [Recovered/Resolved]
  - Depression [Recovered/Resolved]
  - Psoriasis [Recovered/Resolved]
  - Graft versus host disease [Unknown]

NARRATIVE: CASE EVENT DATE: 20190401
